FAERS Safety Report 8881092 (Version 2)
Quarter: 2013Q1

REPORT INFORMATION
  Report Type: Report from Study
  Country: CZ (occurrence: CZ)
  Receive Date: 20121031
  Receipt Date: 20130326
  Transmission Date: 20140127
  Serious: Yes (Other)
  Sender: FDA-Public Use
  Company Number: CZ-ROCHE-1149126

PATIENT
  Sex: 0

DRUGS (2)
  1. CAPECITABINE [Suspect]
     Indication: BREAST CANCER METASTATIC
     Route: 048
  2. LAPATINIB [Suspect]
     Indication: BREAST CANCER METASTATIC
     Route: 048

REACTIONS (6)
  - Hepatotoxicity [Unknown]
  - Skin toxicity [Unknown]
  - Diarrhoea [Unknown]
  - Rash [Unknown]
  - Nausea [Unknown]
  - Vomiting [Unknown]
